FAERS Safety Report 25943447 (Version 2)
Quarter: 2025Q4

REPORT INFORMATION
  Report Type: Spontaneous
  Country: US (occurrence: US)
  Receive Date: 20251021
  Receipt Date: 20251125
  Transmission Date: 20260117
  Serious: No
  Sender: GLAUKOS
  Company Number: US-GLK-000685

PATIENT
  Age: 91 Year
  Sex: Female

DRUGS (1)
  1. TRAVOPROST [Suspect]
     Active Substance: TRAVOPROST
     Indication: Product used for unknown indication
     Dosage: RIGHT EYE
     Route: 047
     Dates: start: 20241023, end: 20241023

REACTIONS (1)
  - Device dislocation [Not Recovered/Not Resolved]

NARRATIVE: CASE EVENT DATE: 20250926
